FAERS Safety Report 4553119-9 (Version None)
Quarter: 2005Q1

REPORT INFORMATION
  Report Type: 
  Country: None (occurrence: None)
  Receive Date: 20050113
  Receipt Date: 20050104
  Transmission Date: 20050727
  Serious: Yes (Other)
  Sender: FDA-Public Use
  Company Number: HQWYE397205JAN05

PATIENT
  Age: 21 Year
  Sex: Female
  Weight: 65.83 kg

DRUGS (2)
  1. EFFEXOR XR [Suspect]
     Dosage: 75 MG 1X PER 1 DAY, ORAL
     Route: 048
     Dates: start: 20031101
  2. MACROBID [Concomitant]

REACTIONS (1)
  - PULMONARY HYPERTENSION [None]
